FAERS Safety Report 6674470-2 (Version None)
Quarter: 2010Q2

REPORT INFORMATION
  Report Type: 
  Country: None (occurrence: None)
  Receive Date: 20100409
  Receipt Date: 20100405
  Transmission Date: 20101027
  Serious: Yes (Death)
  Sender: FDA-Public Use
  Company Number: PHEH2009US12856

PATIENT
  Sex: Female
  Weight: 80.9 kg

DRUGS (8)
  1. EXJADE [Suspect]
     Indication: MYELODYSPLASTIC SYNDROME
     Dosage: 12250 MG, UNK
     Route: 048
  2. EXJADE [Suspect]
     Indication: IRON OVERLOAD
     Dosage: 1750 MG, QD
     Route: 048
     Dates: start: 20080527
  3. VIDAZA [Concomitant]
     Indication: MYELODYSPLASTIC SYNDROME
     Dosage: UNK, EVERY 4 WEEKS
     Route: 042
     Dates: start: 20070901, end: 20080701
  4. ARIMIDEX [Concomitant]
     Indication: BREAST CANCER
     Dosage: UNK, QD
     Route: 048
  5. ELAVIL [Concomitant]
     Dosage: UNK, QD
     Route: 048
  6. LISINOPRIL [Concomitant]
     Indication: CARDIAC DISORDER
     Dosage: UNK, PRN
     Route: 048
  7. VAGIFEM [Concomitant]
     Dosage: UNK, PRN
     Route: 048
  8. AMBIEN [Concomitant]
     Indication: SLEEP DISORDER
     Dosage: UNK, PRN
     Route: 048

REACTIONS (1)
  - DEATH [None]
